FAERS Safety Report 10215664 (Version 1)
Quarter: 2014Q2

REPORT INFORMATION
  Report Type: Report from Study
  Country: CA (occurrence: CA)
  Receive Date: 20140604
  Receipt Date: 20140604
  Transmission Date: 20141212
  Serious: Yes (Other)
  Sender: FDA-Public Use
  Company Number: CA-ROCHE-1412888

PATIENT
  Sex: Female

DRUGS (2)
  1. PEGASYS [Suspect]
     Indication: CHRONIC HEPATITIS C
     Route: 058
     Dates: start: 20140318
  2. COPEGUS [Suspect]
     Indication: CHRONIC HEPATITIS C
     Route: 048
     Dates: start: 20140318

REACTIONS (1)
  - White blood cell disorder [Not Recovered/Not Resolved]
